FAERS Safety Report 5603302-6 (Version None)
Quarter: 2008Q1

REPORT INFORMATION
  Report Type: 
  Country: None (occurrence: None)
  Receive Date: 20080123
  Receipt Date: 20080115
  Transmission Date: 20080703
  Serious: Yes (Death, Hospitalization)
  Sender: FDA-Public Use
  Company Number: 2008SP000382

PATIENT
  Age: 68 Year
  Sex: Female
  Weight: 56 kg

DRUGS (2)
  1. TEMODAL [Suspect]
     Indication: GLIOBLASTOMA
     Dosage: 200 MG; QD; PO
     Route: 048
     Dates: start: 20070706, end: 20080108
  2. CITALOPRAM HYDROBROMIDE [Concomitant]

REACTIONS (9)
  - BLOOD POTASSIUM INCREASED [None]
  - CEREBRAL HAEMORRHAGE [None]
  - COMA [None]
  - HAEMATOCRIT DECREASED [None]
  - HAEMOGLOBIN DECREASED [None]
  - MEAN CELL HAEMOGLOBIN INCREASED [None]
  - MEAN CELL VOLUME INCREASED [None]
  - RED BLOOD CELL COUNT DECREASED [None]
  - VOMITING [None]
